FAERS Safety Report 20778808 (Version 1)
Quarter: 2022Q2

REPORT INFORMATION
  Report Type: Spontaneous
  Country: CA (occurrence: CA)
  Receive Date: 20220503
  Receipt Date: 20220503
  Transmission Date: 20220720
  Serious: Yes (Hospitalization)
  Sender: FDA-Public Use
  Company Number: CA-PFIZER INC-202200615912

PATIENT
  Age: 16 Year
  Sex: Male
  Weight: 99 kg

DRUGS (1)
  1. AZITHROMYCIN [Suspect]
     Active Substance: AZITHROMYCIN
     Indication: Atypical pneumonia
     Dosage: 2 DOSES

REACTIONS (3)
  - Rash [Recovering/Resolving]
  - Mucosal inflammation [Recovering/Resolving]
  - Drug hypersensitivity [Recovering/Resolving]
